FAERS Safety Report 24676969 (Version 1)
Quarter: 2024Q4

REPORT INFORMATION
  Report Type: Report from Study
  Country: JP (occurrence: JP)
  Receive Date: 20241128
  Receipt Date: 20241128
  Transmission Date: 20250114
  Serious: Yes (Death, Other)
  Sender: ALEXION PHARMACEUTICALS
  Company Number: JP-ASTRAZENECA-230027827_011820_P_1

PATIENT
  Age: 18 Year

DRUGS (12)
  1. KOSELUGO [Suspect]
     Active Substance: SELUMETINIB
     Indication: Neurofibromatosis
     Dosage: 50 MILLIGRAM
  2. KOSELUGO [Suspect]
     Active Substance: SELUMETINIB
     Dosage: 50 MILLIGRAM
  3. KOSELUGO [Suspect]
     Active Substance: SELUMETINIB
     Dosage: 50 MILLIGRAM
  4. KOSELUGO [Suspect]
     Active Substance: SELUMETINIB
     Dosage: 50 MILLIGRAM
  5. Oxinorm [Concomitant]
     Indication: Pain
     Dosage: 7.5 MILLIGRAM
  6. Oxinorm [Concomitant]
     Dosage: 7.5 MILLIGRAM
  7. Oxinorm [Concomitant]
     Dosage: 5 MILLIGRAM
  8. Oxinorm [Concomitant]
     Dosage: 5 MILLIGRAM
  9. Oxinorm [Concomitant]
     Dosage: 5 MILLIGRAM
  10. Oxinorm [Concomitant]
     Dosage: 5 MILLIGRAM
  11. SYMPROIC [Concomitant]
     Active Substance: NALDEMEDINE
     Indication: Constipation
     Dosage: 0.2 MILLIGRAM, QD
  12. SYMPROIC [Concomitant]
     Active Substance: NALDEMEDINE
     Dosage: 0.2 MILLIGRAM, QD

REACTIONS (1)
  - Neurofibrosarcoma [Fatal]
